FAERS Safety Report 16706549 (Version 1)
Quarter: 2019Q3

REPORT INFORMATION
  Report Type: Spontaneous
  Country: US (occurrence: US)
  Receive Date: 20190815
  Receipt Date: 20190815
  Transmission Date: 20191004
  Serious: No
  Sender: FDA-Public Use
  Company Number: US-PACIRA-201500083

PATIENT
  Sex: Female

DRUGS (2)
  1. EXPAREL [Suspect]
     Active Substance: BUPIVACAINE
     Indication: POSTOPERATIVE ANALGESIA
     Dosage: 10 CC (HALF VIAL) ON ONE SHOULDER AND THE OTHER HALF WAS DISCARDED
  2. EXPAREL [Suspect]
     Active Substance: BUPIVACAINE
     Indication: POSTOPERATIVE ANALGESIA
     Dosage: 10 CC (HALF VIAL) ON OTHER SHOULDER NEXT DAY, THE OTHER HALF WAS DISCARDED

REACTIONS (1)
  - Inappropriate schedule of product administration [Unknown]
